FAERS Safety Report 16843934 (Version 1)
Quarter: 2019Q3

REPORT INFORMATION
  Report Type: Spontaneous
  Country: US (occurrence: US)
  Receive Date: 20190924
  Receipt Date: 20190924
  Transmission Date: 20191005
  Serious: No
  Sender: FDA-Public Use
  Company Number: US-BAYER-2019-173539

PATIENT
  Age: 59 Year
  Sex: Female
  Weight: 94 kg

DRUGS (1)
  1. CLARITIN-D 24 HOUR [Suspect]
     Active Substance: LORATADINE\PSEUDOEPHEDRINE SULFATE
     Indication: TOOTHACHE
     Dosage: 1 DF, ONCE
     Route: 048

REACTIONS (2)
  - Poor quality sleep [Recovered/Resolved]
  - Product use in unapproved indication [Recovering/Resolving]

NARRATIVE: CASE EVENT DATE: 20190920
